FAERS Safety Report 25504347 (Version 2)
Quarter: 2025Q4

REPORT INFORMATION
  Report Type: Report from Study
  Country: PH (occurrence: PH)
  Receive Date: 20250702
  Receipt Date: 20251104
  Transmission Date: 20260118
  Serious: Yes (Death, Hospitalization)
  Sender: OTSUKA
  Company Number: PH-MMM-Otsuka-9BN6U3FA

PATIENT
  Sex: Female

DRUGS (1)
  1. TOLVAPTAN [Suspect]
     Active Substance: TOLVAPTAN
     Indication: Blood sodium decreased
     Dosage: 2 DF, QD (15 MG 2 TABLETS ONCE A DAY)
     Dates: end: 202509

REACTIONS (3)
  - Nephropathy [Fatal]
  - Blood sodium decreased [Unknown]
  - Urinary tract infection [Unknown]
